FAERS Safety Report 25046573 (Version 1)
Quarter: 2025Q1

REPORT INFORMATION
  Report Type: Spontaneous
  Country: US (occurrence: US)
  Receive Date: 20250306
  Receipt Date: 20250306
  Transmission Date: 20250409
  Serious: No
  Sender: AMGEN
  Company Number: US-AMGEN-USASP2025044714

PATIENT
  Age: 25 Year
  Sex: Male

DRUGS (3)
  1. KRYSTEXXA [Suspect]
     Active Substance: PEGLOTICASE
     Indication: Gout
     Dosage: UNK, Q2WK, PREVIOUSLY TREATED WITH KRYSTEXXA BY ANOTHER PRACTITIONER
     Route: 040
  2. KRYSTEXXA [Suspect]
     Active Substance: PEGLOTICASE
     Dosage: UNK, Q2WK, AFTER RESTARTED CURRENT INFUSION/FIRST INFUSION
     Route: 040
     Dates: start: 20250304, end: 20250304
  3. METHOTREXATE [Suspect]
     Active Substance: METHOTREXATE
     Indication: Product used for unknown indication
     Dosage: UNK UNK, Q4WK
     Route: 065
     Dates: start: 2025

REACTIONS (1)
  - Urticaria [Recovered/Resolved]

NARRATIVE: CASE EVENT DATE: 20250304
